FAERS Safety Report 13153456 (Version 1)
Quarter: 2017Q1

REPORT INFORMATION
  Report Type: Spontaneous
  Country: US (occurrence: US)
  Receive Date: 20170126
  Receipt Date: 20170126
  Transmission Date: 20170428
  Serious: Yes (Hospitalization)
  Sender: FDA-Public Use
  Company Number: US-HORIZON-RAV-0024-2017

PATIENT
  Age: 33 Year
  Sex: Male

DRUGS (4)
  1. MULTIVTAMINS [Concomitant]
  2. RAVICTI [Suspect]
     Active Substance: GLYCEROL PHENYLBUTYRATE
     Indication: ORNITHINE TRANSCARBAMOYLASE DEFICIENCY
     Dosage: 4 ML TID
     Dates: start: 20130522
  3. VITAMIN B12 [Concomitant]
     Active Substance: CYANOCOBALAMIN
  4. PERIACTIN [Concomitant]
     Active Substance: CYPROHEPTADINE HYDROCHLORIDE

REACTIONS (2)
  - Gastroenteritis viral [Recovering/Resolving]
  - Hyperammonaemic crisis [Recovering/Resolving]

NARRATIVE: CASE EVENT DATE: 20170106
